FAERS Safety Report 11730243 (Version 1)
Quarter: 2015Q4

REPORT INFORMATION
  Report Type: Spontaneous
  Country: US (occurrence: US)
  Receive Date: 20151110
  Receipt Date: 20151110
  Transmission Date: 20160304
  Serious: No
  Sender: FDA-Public Use
  Company Number: US-ELI_LILLY_AND_COMPANY-US201111007583

PATIENT
  Sex: Female

DRUGS (1)
  1. FORTEO [Suspect]
     Active Substance: TERIPARATIDE
     Indication: OSTEOPOROSIS
     Dosage: 20 UG, QD
     Dates: start: 20111028, end: 201112

REACTIONS (11)
  - Lymphadenopathy [Recovering/Resolving]
  - Discomfort [Recovering/Resolving]
  - Feeling abnormal [Unknown]
  - Pain in extremity [Unknown]
  - Fear [Unknown]
  - Heart rate increased [Unknown]
  - Breast pain [Recovering/Resolving]
  - Presyncope [Unknown]
  - Middle insomnia [Unknown]
  - Asthenia [Unknown]
  - Arthralgia [Unknown]
